FAERS Safety Report 5259766-3 (Version None)
Quarter: 2007Q1

REPORT INFORMATION
  Report Type: 
  Country: None (occurrence: None)
  Receive Date: 20061117
  Receipt Date: 20060601
  Transmission Date: 20070707
  Serious: Yes (Other)
  Sender: FDA-Public Use
  Company Number: US-JNJFOC-20060503850

PATIENT
  Age: 62 Year
  Sex: Male

DRUGS (3)
  1. LEVAQUIN [Suspect]
     Indication: EPIDIDYMAL INFECTION
     Dosage: 500 MG, 1 IN 1 DAY, ORAL
     Route: 048
     Dates: start: 20060509, end: 20060513
  2. LIPITOR [Concomitant]
  3. ALBUTEROL [Concomitant]

REACTIONS (5)
  - DEPRESSION [None]
  - DYSPNOEA [None]
  - HEADACHE [None]
  - INSOMNIA [None]
  - PAIN [None]
